FAERS Safety Report 9524876 (Version 1)
Quarter: 2013Q3

REPORT INFORMATION
  Report Type: Spontaneous
  Country: US (occurrence: None)
  Receive Date: 20130912
  Receipt Date: 20130912
  Transmission Date: 20140515
  Serious: Yes (Other)
  Sender: FDA-Public Use
  Company Number: None

PATIENT
  Age: 32 Year
  Sex: Female
  Weight: 74.84 kg

DRUGS (2)
  1. OMEPRAZOLE [Suspect]
     Indication: NAUSEA
     Dosage: 1 ONCE DAILY TAKEN BY MOUTH
     Route: 048
     Dates: start: 20130424, end: 20130618
  2. OMEPRAZOLE [Suspect]
     Indication: GASTROOESOPHAGEAL REFLUX DISEASE
     Dosage: 1 ONCE DAILY TAKEN BY MOUTH
     Route: 048
     Dates: start: 20130424, end: 20130618

REACTIONS (9)
  - Palpitations [None]
  - Chest discomfort [None]
  - Anxiety [None]
  - Paraesthesia [None]
  - Abdominal distension [None]
  - Tremor [None]
  - Hypoaesthesia [None]
  - Anxiety [None]
  - Dizziness [None]
